FAERS Safety Report 9201579 (Version 1)
Quarter: 2013Q2

REPORT INFORMATION
  Report Type: Spontaneous
  Country: US (occurrence: None)
  Receive Date: 20130401
  Receipt Date: 20130401
  Transmission Date: 20140414
  Serious: Yes (Death, Hospitalization)
  Sender: FDA-Public Use
  Company Number: None

PATIENT
  Age: 63 Year
  Sex: Male
  Weight: 123.6 kg

DRUGS (2)
  1. WARFARIN [Suspect]
     Dosage: MG  EVERY DAY PO
     Route: 048
     Dates: start: 20070427, end: 20121013
  2. ASPIRIN [Suspect]
     Dosage: 81 MG  EVERY DAY PO
     Route: 048
     Dates: end: 20121013

REACTIONS (2)
  - Haemorrhage intracranial [None]
  - International normalised ratio increased [None]
